FAERS Safety Report 9387997 (Version 1)
Quarter: 2013Q3

REPORT INFORMATION
  Report Type: Spontaneous
  Country: US (occurrence: None)
  Receive Date: 20130701
  Receipt Date: 20130701
  Transmission Date: 20140515
  Serious: Yes (Death)
  Sender: FDA-Public Use
  Company Number: 2013AP006268

PATIENT
  Age: 67 Year
  Sex: Male
  Weight: 68.04 kg

DRUGS (5)
  1. FERRIPROX [Suspect]
     Indication: MYELOFIBROSIS
     Route: 048
     Dates: start: 20120923
  2. FERRIPROX [Suspect]
     Indication: HAEMOCHROMATOSIS
     Route: 048
     Dates: start: 20120923
  3. CARVEDILOL [Concomitant]
  4. EFFEXOR XR [Concomitant]
  5. CRESTOR [Concomitant]

REACTIONS (1)
  - Death [None]
